FAERS Safety Report 7776566-0 (Version None)
Quarter: 2011Q3

REPORT INFORMATION
  Report Type: 
  Country: None (occurrence: None)
  Receive Date: 20110926
  Receipt Date: 20110909
  Transmission Date: 20111222
  Serious: No
  Sender: FDA-Public Use
  Company Number: US-B.I. PHARMACEUTICALS,INC./RIDGEFIELD-2011-BP-21957BP

PATIENT
  Sex: Male

DRUGS (9)
  1. WARFARIN [Concomitant]
     Indication: ATRIAL FIBRILLATION
     Dosage: 5 MG
     Route: 048
     Dates: start: 20080101
  2. SPIRONOLACTONE [Concomitant]
     Indication: PERICARDIAL EFFUSION
     Dosage: 12.5 MG
     Route: 048
  3. CARDIZEM [Concomitant]
     Indication: ATRIAL FIBRILLATION
     Dosage: 480 MG
     Route: 048
     Dates: start: 20070101
  4. SPIRIVA [Suspect]
     Indication: CHRONIC OBSTRUCTIVE PULMONARY DISEASE
     Dosage: 18 MCG
     Route: 055
     Dates: start: 20110601, end: 20110701
  5. LISINOPRIL [Concomitant]
     Indication: HYPERTENSION
     Dosage: 40 MG
     Route: 048
     Dates: start: 20060101
  6. FUROSEMIDE [Concomitant]
     Indication: PERICARDIAL EFFUSION
     Dosage: 60 MG
     Route: 048
     Dates: start: 20070101
  7. GLUCOSAMINE [Concomitant]
     Indication: ARTHRITIS
     Dosage: 1500 MG
     Route: 048
     Dates: start: 20060101
  8. LIPITOR [Concomitant]
     Indication: BLOOD CHOLESTEROL INCREASED
     Dosage: 80 MG
     Route: 048
     Dates: start: 20070101
  9. RED YEAST RICE [Concomitant]
     Indication: BLOOD CHOLESTEROL INCREASED
     Dosage: 1200 MG
     Route: 048
     Dates: start: 20070101

REACTIONS (1)
  - VISUAL IMPAIRMENT [None]
